FAERS Safety Report 21495418 (Version 1)
Quarter: 2022Q4

REPORT INFORMATION
  Report Type: Spontaneous
  Country: DE (occurrence: DE)
  Receive Date: 20221022
  Receipt Date: 20221022
  Transmission Date: 20230112
  Serious: Yes (Hospitalization, Other)
  Sender: FDA-Public Use
  Company Number: DE-ADRED-05468-01

PATIENT
  Age: 44 Year
  Sex: Male
  Weight: 91 kg

DRUGS (1)
  1. AMOXICILLIN TRIHYDRATE [Suspect]
     Active Substance: AMOXICILLIN
     Indication: Product used for unknown indication
     Dosage: 1000 MILLIGRAM, TWO TIMES A DAY
     Route: 048

REACTIONS (8)
  - Clostridium difficile infection [Unknown]
  - Nausea [Unknown]
  - Abdominal pain [Unknown]
  - Dehydration [Unknown]
  - Fatigue [Unknown]
  - Haematochezia [Unknown]
  - General physical health deterioration [Unknown]
  - Diarrhoea [Unknown]
